FAERS Safety Report 17894753 (Version 1)
Quarter: 2020Q2

REPORT INFORMATION
  Report Type: Spontaneous
  Country: US (occurrence: US)
  Receive Date: 20200615
  Receipt Date: 20200615
  Transmission Date: 20200714
  Serious: No
  Sender: FDA-Public Use
  Company Number: US-SA-2020SA146838

PATIENT

DRUGS (5)
  1. ATORVASTATIN [Concomitant]
     Active Substance: ATORVASTATIN
  2. NAPROXEN. [Concomitant]
     Active Substance: NAPROXEN
  3. TRAVATAN Z [Concomitant]
     Active Substance: TRAVOPROST
  4. DUPIXENT [Suspect]
     Active Substance: DUPILUMAB
     Dosage: 300 MG, QOW
     Route: 058
     Dates: start: 20200409
  5. LOSARTAN/HCT [Concomitant]
     Active Substance: HYDROCHLOROTHIAZIDE\LOSARTAN POTASSIUM

REACTIONS (3)
  - Acne [Unknown]
  - Therapeutic response shortened [Unknown]
  - Pruritus [Unknown]

NARRATIVE: CASE EVENT DATE: 20200603
